FAERS Safety Report 4426312-3 (Version None)
Quarter: 2004Q3

REPORT INFORMATION
  Report Type: 
  Country: None (occurrence: None)
  Receive Date: 20040811
  Receipt Date: 20040727
  Transmission Date: 20050211
  Serious: Yes (Life-Threatening)
  Sender: FDA-Public Use
  Company Number: JP-JNJFOC-20040801047

PATIENT
  Age: 52 Year
  Sex: Male

DRUGS (4)
  1. ITRACONAZOLE [Suspect]
     Indication: ONYCHOMYCOSIS
     Dosage: 400 MG, 1 IN 1 DAY, ORAL
     Route: 048
     Dates: start: 20040502, end: 20040601
  2. GLIMEPIRIDE [Concomitant]
  3. LANSOPRAZOLE [Concomitant]
  4. LANOCONAZOLE (LANOCONAZOLE) [Concomitant]

REACTIONS (6)
  - DYSPNOEA [None]
  - GAMMA-GLUTAMYLTRANSFERASE INCREASED [None]
  - LEUKOCYTOSIS [None]
  - RASH GENERALISED [None]
  - RETCHING [None]
  - WHEEZING [None]
